FAERS Safety Report 9236341 (Version 1)
Quarter: 2013Q2

REPORT INFORMATION
  Report Type: Spontaneous
  Country: US (occurrence: US)
  Receive Date: 20130417
  Receipt Date: 20130417
  Transmission Date: 20140414
  Serious: No
  Sender: FDA-Public Use
  Company Number: US-TEVA-398334USA

PATIENT
  Sex: Female
  Weight: 36.32 kg

DRUGS (4)
  1. ACTIQ [Suspect]
     Indication: MALABSORPTION
     Route: 048
  2. METHOTREXATE [Concomitant]
     Indication: MALABSORPTION
  3. CHEMOTHERAPY [Concomitant]
     Indication: MALABSORPTION
  4. MARINOL [Concomitant]
     Indication: NAUSEA

REACTIONS (1)
  - Off label use [Unknown]
